FAERS Safety Report 8025166-6 (Version None)
Quarter: 2012Q1

REPORT INFORMATION
  Report Type: 
  Country: None (occurrence: None)
  Receive Date: 20120105
  Receipt Date: 20111221
  Transmission Date: 20120608
  Serious: Yes (Hospitalization)
  Sender: FDA-Public Use
  Company Number: US-GLAXOSMITHKLINE-A0947653A

PATIENT
  Age: 61 Year
  Sex: Male
  Weight: 97 kg

DRUGS (3)
  1. WARFARIN SODIUM [Concomitant]
  2. NIFEDIPINE [Concomitant]
  3. FLOLAN [Suspect]
     Indication: PULMONARY ARTERIAL HYPERTENSION
     Dosage: 20NGKM SEE DOSAGE TEXT
     Route: 042
     Dates: start: 20060602

REACTIONS (2)
  - RASH [None]
  - CEREBROVASCULAR ACCIDENT [None]
